FAERS Safety Report 13695007 (Version 1)
Quarter: 2017Q2

REPORT INFORMATION
  Report Type: Spontaneous
  Country: US (occurrence: US)
  Receive Date: 20170627
  Receipt Date: 20170627
  Transmission Date: 20170830
  Serious: Yes (Other)
  Sender: FDA-Public Use
  Company Number: PHHY2017US089781

PATIENT
  Age: 36 Year
  Sex: Male

DRUGS (3)
  1. PEMETREXED. [Suspect]
     Active Substance: PEMETREXED
     Indication: MALIGNANT NEOPLASM PROGRESSION
     Dosage: 500 MG/M2, UNK
     Route: 065
  2. CARBOPLATIN. [Suspect]
     Active Substance: CARBOPLATIN
     Indication: MALIGNANT NEOPLASM PROGRESSION
     Dosage: 572.5 MG/M2, UNK
     Route: 065
  3. BEVACIZUMAB [Suspect]
     Active Substance: BEVACIZUMAB
     Indication: MALIGNANT NEOPLASM PROGRESSION
     Dosage: 15 MG/KG, UNK
     Route: 065

REACTIONS (4)
  - Diarrhoea [Unknown]
  - Hypophagia [Unknown]
  - Mucosal inflammation [Unknown]
  - Dehydration [Unknown]
